FAERS Safety Report 13551696 (Version 1)
Quarter: 2017Q2

REPORT INFORMATION
  Report Type: Spontaneous
  Country: None (occurrence: US)
  Receive Date: 20170516
  Receipt Date: 20170516
  Transmission Date: 20170830
  Serious: No
  Sender: FDA-Public Use
  Company Number: US-MERZ NORTH AMERICA, INC.-17MRZ-00160

PATIENT
  Age: 32 Year
  Sex: Female

DRUGS (1)
  1. XEOMIN [Suspect]
     Active Substance: INCOBOTULINUMTOXINA
     Indication: PRODUCT USED FOR UNKNOWN INDICATION
     Dosage: 10 UNITS TO FOREHEAD, ?10 UNITS TO GLABELLA ?10 UNITS TO EACH CROWS FEET?TOTAL 40 UNITS

REACTIONS (1)
  - Brow ptosis [Unknown]
